FAERS Safety Report 23597757 (Version 1)
Quarter: 2024Q1

REPORT INFORMATION
  Report Type: Spontaneous
  Country: US (occurrence: US)
  Receive Date: 20240305
  Receipt Date: 20240305
  Transmission Date: 20240410
  Serious: Yes (Hospitalization, Other)
  Sender: FDA-Public Use
  Company Number: US-009507513-2402USA009574

PATIENT
  Age: 71 Year
  Sex: Male

DRUGS (1)
  1. KEYTRUDA [Suspect]
     Active Substance: PEMBROLIZUMAB
     Indication: Lung neoplasm malignant
     Dosage: Q3W
     Route: 042
     Dates: start: 2020, end: 20231121

REACTIONS (9)
  - Dyspnoea [Unknown]
  - Fatigue [Unknown]
  - Asthenia [Unknown]
  - Suicidal ideation [Unknown]
  - Burning sensation [Unknown]
  - Headache [Unknown]
  - Dry eye [Unknown]
  - Chest pain [Unknown]
  - Product use issue [Unknown]
